FAERS Safety Report 8159996-7 (Version None)
Quarter: 2012Q1

REPORT INFORMATION
  Report Type: 
  Country: None (occurrence: None)
  Receive Date: 20120223
  Receipt Date: 20120220
  Transmission Date: 20120608
  Serious: Yes (Other)
  Sender: FDA-Public Use
  Company Number: US-GLAXOSMITHKLINE-A0966563A

PATIENT
  Age: 17 Year
  Sex: Male

DRUGS (7)
  1. TAZORAC [Concomitant]
  2. ADVAIR DISKUS 100/50 [Suspect]
     Indication: ASTHMA
     Dosage: 1PUFF TWICE PER DAY
     Route: 055
     Dates: start: 19990101
  3. BACTRIM [Concomitant]
  4. PROAIR HFA [Concomitant]
  5. ZYRTEC [Concomitant]
  6. AMPICILLIN [Concomitant]
  7. CLARITIN [Concomitant]

REACTIONS (3)
  - CUSHINGOID [None]
  - ALOPECIA [None]
  - HYPOGONADISM [None]
